FAERS Safety Report 7353639-8 (Version None)
Quarter: 2011Q1

REPORT INFORMATION
  Report Type: 
  Country: None (occurrence: None)
  Receive Date: 20110303
  Receipt Date: 20100602
  Transmission Date: 20110831
  Serious: Yes (Hospitalization)
  Sender: FDA-Public Use
  Company Number: US-004549

PATIENT
  Age: 49 Year
  Sex: Female
  Weight: 38.5 kg

DRUGS (6)
  1. ISOVUE-300 [Suspect]
     Indication: COMPUTERISED TOMOGRAM ABDOMEN
     Dosage: 60ML ONCE INTRAVENOUS (NOT OTHERWISE SPECIFIED)
     Route: 042
     Dates: start: 20100526, end: 20100526
  2. ISOVUE-300 [Suspect]
     Indication: LYMPHADENOPATHY
     Dosage: 60ML ONCE INTRAVENOUS (NOT OTHERWISE SPECIFIED)
     Route: 042
     Dates: start: 20100526, end: 20100526
  3. XANAX [Concomitant]
  4. PREMARIN [Concomitant]
  5. FROVA (FROVATRIPTAN SUCCINATE MONOHYDRATE) [Concomitant]
  6. TRAZODONE (TRAZODONE) [Concomitant]

REACTIONS (2)
  - CONTRAST MEDIA ALLERGY [None]
  - ANAPHYLACTIC REACTION [None]
